FAERS Safety Report 17754775 (Version 1)
Quarter: 2020Q2

REPORT INFORMATION
  Report Type: Spontaneous
  Country: CA (occurrence: CA)
  Receive Date: 20200507
  Receipt Date: 20200507
  Transmission Date: 20200714
  Serious: Yes (Other)
  Sender: FDA-Public Use
  Company Number: CA-ROCHE-2593425

PATIENT
  Age: 52 Year
  Sex: Female
  Weight: 137 kg

DRUGS (9)
  1. CYMBALTA [Suspect]
     Active Substance: DULOXETINE HYDROCHLORIDE
     Indication: PRODUCT USED FOR UNKNOWN INDICATION
     Dosage: FREQUENCY: CYCLICAL
     Route: 065
  2. MEDROXYPROGESTERONE ACETATE. [Suspect]
     Active Substance: MEDROXYPROGESTERONE ACETATE
     Indication: PRODUCT USED FOR UNKNOWN INDICATION
     Dosage: FREQUENCY: CYCLICAL
     Route: 065
  3. METHOTREXATE. [Concomitant]
     Active Substance: METHOTREXATE
  4. ACTEMRA [Suspect]
     Active Substance: TOCILIZUMAB
     Indication: RHEUMATOID ARTHRITIS
     Dosage: FREQUENCY: CYCLICAL
     Route: 042
  5. HYZAAR [Suspect]
     Active Substance: HYDROCHLOROTHIAZIDE\LOSARTAN POTASSIUM
     Indication: PRODUCT USED FOR UNKNOWN INDICATION
     Dosage: FREQUENCY: CYCLICAL
     Route: 065
  6. TYLENOL 8 HR ARTHRITIS PAIN [Concomitant]
     Active Substance: ACETAMINOPHEN
  7. ESTRACE [Suspect]
     Active Substance: ESTRADIOL
     Indication: PRODUCT USED FOR UNKNOWN INDICATION
     Dosage: FREQUENCY: CYCLICAL
     Route: 065
  8. HYDROMORPH CONTIN [Suspect]
     Active Substance: HYDROMORPHONE
     Indication: PRODUCT USED FOR UNKNOWN INDICATION
     Dosage: FREQUENCY: CYCLICAL
     Route: 065
  9. HYDROMORPH CONTIN [Suspect]
     Active Substance: HYDROMORPHONE
     Dosage: FREQUENCY: CYCLICAL
     Route: 065

REACTIONS (31)
  - Hyperkeratosis [Unknown]
  - Pain in jaw [Unknown]
  - Respiratory rate increased [Unknown]
  - Vomiting [Unknown]
  - Influenza [Unknown]
  - Sinusitis [Unknown]
  - Synovitis [Unknown]
  - Diabetes mellitus [Unknown]
  - Hypotension [Unknown]
  - Blood pressure diastolic decreased [Unknown]
  - Fine motor skill dysfunction [Unknown]
  - Localised infection [Unknown]
  - Oxygen saturation decreased [Unknown]
  - Gastroenteritis [Unknown]
  - Nasopharyngitis [Unknown]
  - Weight increased [Unknown]
  - Arthritis [Unknown]
  - Blood pressure systolic increased [Unknown]
  - Drug ineffective [Unknown]
  - Drug intolerance [Unknown]
  - Nausea [Unknown]
  - Pain [Unknown]
  - Weight decreased [Unknown]
  - Arthralgia [Unknown]
  - Inflammation [Unknown]
  - Muscle fatigue [Unknown]
  - Toothache [Unknown]
  - Blood pressure increased [Unknown]
  - Infusion related reaction [Unknown]
  - Myalgia [Unknown]
  - Skin laceration [Unknown]
